FAERS Safety Report 7563136-2 (Version None)
Quarter: 2011Q2

REPORT INFORMATION
  Report Type: 
  Country: None (occurrence: None)
  Receive Date: 20110622
  Receipt Date: 20110614
  Transmission Date: 20111010
  Serious: Yes (Death, Hospitalization)
  Sender: FDA-Public Use
  Company Number: FR-SANOFI-AVENTIS-2011SA028333

PATIENT
  Age: 64 Year
  Sex: Male
  Weight: 69 kg

DRUGS (5)
  1. MSC1936369B [Suspect]
     Indication: ADENOCARCINOMA PANCREAS
     Dosage: 5 IN 7 DAYS
     Route: 048
     Dates: start: 20101108, end: 20110414
  2. ATENOLOL [Suspect]
     Indication: HYPERTENSION
     Route: 048
  3. GEMCITABINE [Suspect]
     Indication: ADENOCARCINOMA PANCREAS
     Route: 042
     Dates: start: 20110404, end: 20110404
  4. PLAVIX [Suspect]
     Indication: MYOCARDIAL INFARCTION
     Route: 048
     Dates: start: 20040301
  5. PERINDOPRIL ERBUMINE [Suspect]
     Indication: HYPERTENSION
     Route: 048
     Dates: start: 20040301

REACTIONS (3)
  - ATAXIA [None]
  - PULMONARY EMBOLISM [None]
  - POLYNEUROPATHY [None]
